FAERS Safety Report 10137264 (Version 2)
Quarter: 2014Q2

REPORT INFORMATION
  Report Type: Spontaneous
  Country: US (occurrence: None)
  Receive Date: 20140425
  Receipt Date: 20140523
  Transmission Date: 20141212
  Serious: Yes (Death)
  Sender: FDA-Public Use
  Company Number: UTC-047492

PATIENT
  Age: 62 Year
  Sex: Female
  Weight: 120.6 kg

DRUGS (2)
  1. REMODULIN [Suspect]
     Indication: PULMONARY ARTERIAL HYPERTENSION
     Route: 042
     Dates: start: 20130206
  2. LETAIRIS [Concomitant]

REACTIONS (5)
  - Death [None]
  - Pulmonary arterial hypertension [None]
  - Chronic respiratory failure [None]
  - Fluid overload [None]
  - Renal failure chronic [None]
